FAERS Safety Report 8299704-2 (Version None)
Quarter: 2012Q2

REPORT INFORMATION
  Report Type: 
  Country: None (occurrence: None)
  Receive Date: 20120419
  Receipt Date: 20120406
  Transmission Date: 20120825
  Serious: Yes (Hospitalization)
  Sender: FDA-Public Use
  Company Number: GB-ROCHE-1045264

PATIENT
  Sex: Male
  Weight: 117 kg

DRUGS (14)
  1. NOVORAPID [Concomitant]
     Dates: start: 19900101
  2. BISOPROLOL FUMARATE [Concomitant]
     Dates: start: 19990119
  3. LANTUS [Concomitant]
     Dates: start: 19900101
  4. GLUCOPHAGE [Concomitant]
     Dates: start: 19900101
  5. DULOXETINE HYDROCHLORIDE [Concomitant]
     Dates: start: 20051215
  6. AMITRIPTYLINE HCL [Concomitant]
     Dates: start: 20051215
  7. PERINDOPRIL ERBUMINE [Concomitant]
     Dates: start: 20080221
  8. WARFARIN SODIUM [Concomitant]
     Dates: start: 20091026
  9. ROSUVASTATIN [Concomitant]
     Dates: start: 20080220
  10. EPLERENONE [Concomitant]
     Dates: start: 20080221
  11. BUMETANIDE [Concomitant]
     Dates: start: 19900101
  12. RANIBIZUMAB [Suspect]
     Indication: DIABETIC RETINAL OEDEMA
     Route: 050
     Dates: start: 20111004, end: 20111004
  13. FENOFIBRATE [Concomitant]
     Dates: start: 20080221
  14. NITROGLYCERIN [Concomitant]
     Dates: start: 20060515

REACTIONS (4)
  - RENAL FAILURE ACUTE [None]
  - HYPERGLYCAEMIA [None]
  - HEAD INJURY [None]
  - CHEST PAIN [None]
